FAERS Safety Report 11457850 (Version 1)
Quarter: 2015Q3

REPORT INFORMATION
  Report Type: Report from Study
  Country: US (occurrence: US)
  Receive Date: 20150904
  Receipt Date: 20150904
  Transmission Date: 20151125
  Serious: Yes (Other)
  Sender: FDA-Public Use
  Company Number: US-SA-2015SA132403

PATIENT
  Sex: Male

DRUGS (1)
  1. CLOMIFENE CITRATE [Suspect]
     Active Substance: CLOMIPHENE
     Indication: ANDROGEN DEFICIENCY
     Route: 065

REACTIONS (3)
  - Product use issue [Unknown]
  - Blood testosterone decreased [Unknown]
  - Paradoxical drug reaction [Unknown]
